FAERS Safety Report 13039183 (Version 1)
Quarter: 2016Q4

REPORT INFORMATION
  Report Type: Spontaneous
  Country: US (occurrence: US)
  Receive Date: 20161216
  Receipt Date: 20161216
  Transmission Date: 20170207
  Serious: No
  Sender: FDA-Public Use
  Company Number: None

PATIENT
  Age: 59 Year
  Sex: Female

DRUGS (2)
  1. TEMOZOLOMIDE CAP 20MG [Suspect]
     Active Substance: TEMOZOLOMIDE
     Indication: CROHN^S DISEASE
  2. TEMOZOLOMIDE CAP 20MG [Suspect]
     Active Substance: TEMOZOLOMIDE
     Indication: BRAIN NEOPLASM MALIGNANT

REACTIONS (5)
  - Nuclear magnetic resonance imaging abnormal [None]
  - Fall [None]
  - Dizziness [None]
  - Head injury [None]
  - Calcinosis [None]

NARRATIVE: CASE EVENT DATE: 20161216
